FAERS Safety Report 24430798 (Version 2)
Quarter: 2024Q4

REPORT INFORMATION
  Report Type: Spontaneous
  Country: US (occurrence: US)
  Receive Date: 20241014
  Receipt Date: 20241106
  Transmission Date: 20250115
  Serious: No
  Sender: BAUSCH AND LOMB
  Company Number: US-BAUSCHBL-2024BNL035179

PATIENT
  Age: 82 Year
  Sex: Female

DRUGS (1)
  1. LATANOPROST [Suspect]
     Active Substance: LATANOPROST
     Indication: Open angle glaucoma
     Dosage: THE PATIENT HAS BEEN USING LATANOPROST EYE DROPS, FOR 18 TO 20 YEARS,
     Route: 047

REACTIONS (6)
  - Intraocular pressure increased [Unknown]
  - Eye laser surgery [Unknown]
  - Product delivery mechanism issue [Unknown]
  - Product container issue [Unknown]
  - Product complaint [Unknown]
  - Circumstance or information capable of leading to medication error [Unknown]
